FAERS Safety Report 25413279 (Version 1)
Quarter: 2025Q2

REPORT INFORMATION
  Report Type: Spontaneous
  Country: FR (occurrence: FR)
  Receive Date: 20250609
  Receipt Date: 20250609
  Transmission Date: 20250717
  Serious: Yes (Hospitalization, Other)
  Sender: MYLAN
  Company Number: None

PATIENT
  Age: 53 Year
  Sex: Male

DRUGS (20)
  1. PREGABALIN [Suspect]
     Active Substance: PREGABALIN
     Indication: Product used for unknown indication
     Dosage: MISUSE ONCE A MONTH
  2. PREGABALIN [Suspect]
     Active Substance: PREGABALIN
     Dosage: MISUSE ONCE A MONTH
     Route: 048
  3. PREGABALIN [Suspect]
     Active Substance: PREGABALIN
     Dosage: MISUSE ONCE A MONTH
     Route: 048
  4. PREGABALIN [Suspect]
     Active Substance: PREGABALIN
     Dosage: MISUSE ONCE A MONTH
  5. METHADONE HYDROCHLORIDE [Suspect]
     Active Substance: METHADONE HYDROCHLORIDE
     Indication: Product used for unknown indication
     Dosage: 130 MILLIGRAM, QD
     Dates: start: 1999
  6. METHADONE HYDROCHLORIDE [Suspect]
     Active Substance: METHADONE HYDROCHLORIDE
     Dosage: 130 MILLIGRAM, QD
     Route: 048
     Dates: start: 1999
  7. METHADONE HYDROCHLORIDE [Suspect]
     Active Substance: METHADONE HYDROCHLORIDE
     Dosage: 130 MILLIGRAM, QD
     Route: 048
     Dates: start: 1999
  8. METHADONE HYDROCHLORIDE [Suspect]
     Active Substance: METHADONE HYDROCHLORIDE
     Dosage: 130 MILLIGRAM, QD
     Dates: start: 1999
  9. OXAZEPAM [Suspect]
     Active Substance: OXAZEPAM
     Indication: Product used for unknown indication
     Dosage: 10 DOSAGE FORM, QD (MISUSE 10 TABLETS EACH MORNING)
  10. OXAZEPAM [Suspect]
     Active Substance: OXAZEPAM
     Dosage: 10 DOSAGE FORM, QD (MISUSE 10 TABLETS EACH MORNING)
     Route: 048
  11. OXAZEPAM [Suspect]
     Active Substance: OXAZEPAM
     Dosage: 10 DOSAGE FORM, QD (MISUSE 10 TABLETS EACH MORNING)
     Route: 048
  12. OXAZEPAM [Suspect]
     Active Substance: OXAZEPAM
     Dosage: 10 DOSAGE FORM, QD (MISUSE 10 TABLETS EACH MORNING)
  13. COCAINE [Suspect]
     Active Substance: COCAINE
     Indication: Product used for unknown indication
  14. COCAINE [Suspect]
     Active Substance: COCAINE
     Route: 065
  15. COCAINE [Suspect]
     Active Substance: COCAINE
     Route: 065
  16. COCAINE [Suspect]
     Active Substance: COCAINE
  17. CANNABIS SATIVA FLOWERING TOP [Suspect]
     Active Substance: CANNABIS SATIVA FLOWERING TOP
     Indication: Product used for unknown indication
     Dosage: ALMOST DAILY CONSUMPTION OF UP TO 3 JOINTS PER DAY
  18. CANNABIS SATIVA FLOWERING TOP [Suspect]
     Active Substance: CANNABIS SATIVA FLOWERING TOP
     Dosage: ALMOST DAILY CONSUMPTION OF UP TO 3 JOINTS PER DAY
     Route: 055
  19. CANNABIS SATIVA FLOWERING TOP [Suspect]
     Active Substance: CANNABIS SATIVA FLOWERING TOP
     Dosage: ALMOST DAILY CONSUMPTION OF UP TO 3 JOINTS PER DAY
     Route: 055
  20. CANNABIS SATIVA FLOWERING TOP [Suspect]
     Active Substance: CANNABIS SATIVA FLOWERING TOP
     Dosage: ALMOST DAILY CONSUMPTION OF UP TO 3 JOINTS PER DAY

REACTIONS (3)
  - Bradypnoea [Recovered/Resolved]
  - Depressed level of consciousness [Recovered/Resolved]
  - Drug abuse [Unknown]

NARRATIVE: CASE EVENT DATE: 20220101
